FAERS Safety Report 17559625 (Version 1)
Quarter: 2020Q1

REPORT INFORMATION
  Report Type: Report from Study
  Country: US (occurrence: US)
  Receive Date: 20200319
  Receipt Date: 20200319
  Transmission Date: 20200409
  Serious: Yes (Death)
  Sender: FDA-Public Use
  Company Number: US-SUN PHARMACEUTICAL INDUSTRIES LTD-2020R1-240616

PATIENT
  Age: 70 Year

DRUGS (1)
  1. HYDROCODONE/ACETAMINOPHEN [Suspect]
     Active Substance: ACETAMINOPHEN\HYDROCODONE
     Indication: PAIN
     Dosage: ONE TO TWO TABLETS EVERY 3 TO 4 HOURS,  PRN
     Route: 065

REACTIONS (2)
  - Accidental overdose [Fatal]
  - Respiratory failure [Fatal]
